FAERS Safety Report 8238510-1 (Version None)
Quarter: 2012Q1

REPORT INFORMATION
  Report Type: 
  Country: None (occurrence: None)
  Receive Date: 20120327
  Receipt Date: 20120314
  Transmission Date: 20120608
  Serious: Yes (Hospitalization, Other)
  Sender: FDA-Public Use
  Company Number: JP-UCBSA-046703

PATIENT
  Age: 30 Year
  Sex: Male

DRUGS (3)
  1. PHENYTOIN SODIUM CAP [Concomitant]
     Indication: EPILEPSY
     Dosage: DAILY DOSE: 200 MG
     Route: 048
     Dates: start: 20050101
  2. KEPPRA [Suspect]
     Indication: EPILEPSY
     Route: 048
     Dates: start: 20111001, end: 20111107
  3. TEGRETOL [Suspect]
     Indication: EPILEPSY
     Dosage: DAILY DOSE: 400 MG
     Route: 048
     Dates: start: 20101201, end: 20111107

REACTIONS (3)
  - NEPHRITIS [None]
  - ERYTHEMA MULTIFORME [None]
  - HEPATITIS ACUTE [None]
